FAERS Safety Report 14244510 (Version 2)
Quarter: 2017Q4

REPORT INFORMATION
  Report Type: Spontaneous
  Country: US (occurrence: US)
  Receive Date: 20171201
  Receipt Date: 20171216
  Transmission Date: 20180321
  Serious: No
  Sender: FDA-Public Use
  Company Number: US-009507513-1711USA012669

PATIENT
  Sex: Male

DRUGS (2)
  1. INTEGRILIN [Suspect]
     Active Substance: EPTIFIBATIDE
     Indication: CEREBRAL ARTERY OCCLUSION
     Dosage: 135 MICROGRAM PER KILOGRAM, IN A BOLUS
  2. INTEGRILIN [Suspect]
     Active Substance: EPTIFIBATIDE
     Dosage: 0.5 MCG/KG/MIN INFUSION

REACTIONS (1)
  - Product use in unapproved indication [Unknown]
